FAERS Safety Report 4753318-7 (Version None)
Quarter: 2005Q3

REPORT INFORMATION
  Report Type: 
  Country: None (occurrence: None)
  Receive Date: 20050824
  Receipt Date: 20050601
  Transmission Date: 20060218
  Serious: Yes (Hospitalization)
  Sender: FDA-Public Use
  Company Number: 2005-01023

PATIENT
  Age: 67 Year
  Sex: Female
  Weight: 77.3 kg

DRUGS (14)
  1. VELCADE [Suspect]
     Indication: MULTIPLE MYELOMA
     Dosage: 1.63 MG, UNK, IV BOLUS
     Route: 040
     Dates: start: 20050101, end: 20050429
  2. DECADRON [Concomitant]
  3. AREDIA [Concomitant]
  4. MULTIVITAMINS (ERGOCALCIFEROL, ASCORBIC ACID, FOLIC ACID, RETINOL, THI [Concomitant]
  5. LOZOL [Concomitant]
  6. CLONIDINE [Concomitant]
  7. KCL (POTASSIUM CHLORIDE) [Concomitant]
  8. ALBUTEROL [Concomitant]
  9. ACYCLOVIR [Concomitant]
  10. KEFLEX [Concomitant]
  11. DIFLUCAN [Concomitant]
  12. SENOKOT-S (DOCUSATE SODIUM, SENNA) [Concomitant]
  13. AMBIEN [Concomitant]
  14. CYCLOBENZAPRINE HCL [Concomitant]

REACTIONS (18)
  - AGGRESSION [None]
  - ALANINE AMINOTRANSFERASE INCREASED [None]
  - ASPARTATE AMINOTRANSFERASE INCREASED [None]
  - BLOOD ALKALINE PHOSPHATASE INCREASED [None]
  - BLOOD CALCIUM INCREASED [None]
  - BLOOD LACTATE DEHYDROGENASE INCREASED [None]
  - BLOOD UREA INCREASED [None]
  - COMMUNICATION DISORDER [None]
  - CONFUSIONAL STATE [None]
  - DISORIENTATION [None]
  - DRY MOUTH [None]
  - ELECTROLYTE IMBALANCE [None]
  - HYPERGLYCAEMIA [None]
  - HYPEROSMOLAR STATE [None]
  - PANCREATITIS [None]
  - PLATELET COUNT DECREASED [None]
  - SINUSITIS [None]
  - TONGUE DRY [None]
